FAERS Safety Report 4444677-3 (Version None)
Quarter: 2004Q3

REPORT INFORMATION
  Report Type: 
  Country: None (occurrence: None)
  Receive Date: 20040903
  Receipt Date: 20040826
  Transmission Date: 20050211
  Serious: Yes (Hospitalization)
  Sender: FDA-Public Use
  Company Number: 2004-BP-07344RO

PATIENT
  Age: 31 Month
  Sex: Female

DRUGS (1)
  1. MERCAPTOPURINE [Suspect]
     Dosage: MAX OF 8 TABLETS INGESTED (400 MG) (50 MG, PO
     Route: 048

REACTIONS (2)
  - ACCIDENTAL EXPOSURE [None]
  - OVERDOSE [None]
